FAERS Safety Report 17203080 (Version 1)
Quarter: 2019Q4

REPORT INFORMATION
  Report Type: Report from Study
  Country: CO (occurrence: CO)
  Receive Date: 20191226
  Receipt Date: 20191226
  Transmission Date: 20200122
  Serious: Yes (Hospitalization)
  Sender: FDA-Public Use
  Company Number: CO-ASTRAZENECA-2019SF87462

PATIENT
  Age: 3 Month
  Sex: Male
  Weight: 5 kg

DRUGS (1)
  1. SYNAGIS [Suspect]
     Active Substance: PALIVIZUMAB
     Indication: PREMATURE BABY
     Route: 030
     Dates: start: 20190925

REACTIONS (3)
  - Nasal congestion [Recovering/Resolving]
  - Respiratory distress [Recovering/Resolving]
  - Use of accessory respiratory muscles [Recovering/Resolving]

NARRATIVE: CASE EVENT DATE: 20191207
